FAERS Safety Report 8988954 (Version 3)
Quarter: 2013Q1

REPORT INFORMATION
  Report Type: Spontaneous
  Country: DK (occurrence: DK)
  Receive Date: 20121227
  Receipt Date: 20130307
  Transmission Date: 20140127
  Serious: Yes (Other)
  Sender: FDA-Public Use
  Company Number: DK-PFIZER INC-2012325990

PATIENT
  Age: 74 Year
  Sex: Male

DRUGS (2)
  1. VIAGRA [Suspect]
     Indication: ERECTILE DYSFUNCTION
     Dosage: 100 MG, UNK
  2. MYCOPHENOLATE MOFETIL [Suspect]

REACTIONS (4)
  - Intercepted medication error [Unknown]
  - Influenza [Unknown]
  - Product commingling [Unknown]
  - Malaise [Unknown]
